FAERS Safety Report 15826012 (Version 1)
Quarter: 2019Q1

REPORT INFORMATION
  Report Type: Spontaneous
  Country: US (occurrence: US)
  Receive Date: 20190115
  Receipt Date: 20190115
  Transmission Date: 20190417
  Serious: No
  Sender: FDA-Public Use
  Company Number: US-ELI_LILLY_AND_COMPANY-US201901005066

PATIENT
  Sex: Female

DRUGS (1)
  1. HUMATROPE [Suspect]
     Active Substance: SOMATROPIN
     Indication: PRODUCT USED FOR UNKNOWN INDICATION
     Dosage: 1.4 MG, DAILY
     Route: 058
     Dates: start: 201706

REACTIONS (3)
  - Gastroenteritis viral [Recovered/Resolved]
  - Tachycardia [Not Recovered/Not Resolved]
  - Blood potassium decreased [Recovered/Resolved]
